FAERS Safety Report 6102884-8 (Version None)
Quarter: 2009Q1

REPORT INFORMATION
  Report Type: 
  Country: None (occurrence: None)
  Receive Date: 20090305
  Receipt Date: 20090225
  Transmission Date: 20090719
  Serious: Yes (Hospitalization)
  Sender: FDA-Public Use
  Company Number: US-RB-010958-09

PATIENT
  Age: 34 Year
  Sex: Female

DRUGS (1)
  1. MUCINEX [Suspect]
     Route: 048
     Dates: start: 20090130

REACTIONS (3)
  - FOREIGN BODY TRAUMA [None]
  - HAEMORRHAGE [None]
  - SCRATCH [None]
